FAERS Safety Report 21592795 (Version 1)
Quarter: 2022Q4

REPORT INFORMATION
  Report Type: Other
  Country: US (occurrence: None)
  Receive Date: 20221114
  Receipt Date: 20221114
  Transmission Date: 20230112
  Serious: No
  Sender: FDA-Public Use
  Company Number: US-ROCHE-3205789

PATIENT
  Age: 23 Year
  Sex: Female

DRUGS (1)
  1. OCREVUS [Suspect]
     Active Substance: OCRELIZUMAB
     Indication: Multiple sclerosis
     Dosage: 300 MG Q 2 WEEKS THEN 600MG IV Q6 MONTH, RECENT INFUSION DATE: 01/APR/2022
     Route: 042

REACTIONS (2)
  - Escherichia infection [Recovered/Resolved]
  - B-lymphocyte count decreased [Unknown]
